FAERS Safety Report 11909606 (Version 1)
Quarter: 2016Q1

REPORT INFORMATION
  Report Type: Spontaneous
  Country: US (occurrence: US)
  Receive Date: 20160112
  Receipt Date: 20160112
  Transmission Date: 20160526
  Serious: No
  Sender: FDA-Public Use
  Company Number: US-NATCO PHARMA LIMITED-1046370

PATIENT
  Age: 48 Year
  Sex: Male
  Weight: 75 kg

DRUGS (2)
  1. MULTIVITAMIN [Concomitant]
     Active Substance: VITAMINS
  2. CHLOROQUINE PHOSPHATE TABLETS, 500 MG [Suspect]
     Active Substance: CHLOROQUINE PHOSPHATE
     Route: 048
     Dates: start: 20150608, end: 20150801

REACTIONS (2)
  - Tinnitus [Not Recovered/Not Resolved]
  - Deafness [Not Recovered/Not Resolved]

NARRATIVE: CASE EVENT DATE: 20150616
